FAERS Safety Report 17429733 (Version 1)
Quarter: 2020Q1

REPORT INFORMATION
  Report Type: Spontaneous
  Country: US (occurrence: US)
  Receive Date: 20200218
  Receipt Date: 20200218
  Transmission Date: 20200409
  Serious: Yes (Hospitalization, Other)
  Sender: FDA-Public Use
  Company Number: US-GLAXOSMITHKLINE-US2020GSK025719

PATIENT
  Age: 31 Year
  Sex: Female

DRUGS (4)
  1. EPOPROSTENOL. [Suspect]
     Active Substance: EPOPROSTENOL
     Indication: PULMONARY ARTERIAL HYPERTENSION
     Dosage: UNK (2NG/KG/MIN )  (INCREMENTS OF 1-2NG/KG/MIN )
     Route: 042
  2. MACITENTAN [Concomitant]
     Active Substance: MACITENTAN
     Indication: PULMONARY ARTERIAL HYPERTENSION
     Dosage: UNK
  3. EPOPROSTENOL. [Suspect]
     Active Substance: EPOPROSTENOL
     Dosage: UNK (POSTPARTUM SECOND COURSE OF TRETAMENT)
  4. SILDENAFIL. [Concomitant]
     Active Substance: SILDENAFIL
     Indication: PULMONARY ARTERIAL HYPERTENSION
     Dosage: UNK

REACTIONS (8)
  - Flushing [Unknown]
  - Nausea [Unknown]
  - Hypotension [Unknown]
  - Exposure during pregnancy [Unknown]
  - Lethargy [Unknown]
  - Pulmonary embolism [Unknown]
  - Pain in jaw [Unknown]
  - Live birth [Unknown]
